FAERS Safety Report 5647896-3 (Version None)
Quarter: 2008Q1

REPORT INFORMATION
  Report Type: 
  Country: None (occurrence: None)
  Receive Date: 20080228
  Receipt Date: 20080218
  Transmission Date: 20080703
  Serious: Yes (Other)
  Sender: FDA-Public Use
  Company Number: 289647

PATIENT
  Age: 41 Year
  Sex: Female
  Weight: 95.2554 kg

DRUGS (1)
  1. NIX [Suspect]
     Indication: LICE INFESTATION
     Dosage: 2 OZ TOPICAL APPLICATIONX1
     Route: 061
     Dates: start: 20071109, end: 20071109

REACTIONS (2)
  - EPILEPSY [None]
  - GRAND MAL CONVULSION [None]
